FAERS Safety Report 8802760 (Version 2)
Quarter: 2012Q4

REPORT INFORMATION
  Report Type: 
  Country: JP (occurrence: JP)
  Receive Date: 20120921
  Receipt Date: 20121031
  Transmission Date: 20130627
  Serious: Yes (Other)
  Sender: FDA-Public Use
  Company Number: JP-009507513-1206USA01493

PATIENT
  Age: 70 Year
  Sex: Female

DRUGS (17)
  1. FOSAPREPITANT DIMEGLUMINE [Suspect]
     Indication: PROPHYLAXIS OF NAUSEA AND VOMITING
     Dosage: 150 mg, Once
     Route: 041
     Dates: start: 20120403, end: 20120403
  2. FOSAPREPITANT DIMEGLUMINE [Suspect]
     Dosage: 150 mg, Once
     Route: 041
     Dates: start: 20120424, end: 20120424
  3. ALOXI [Concomitant]
     Dosage: 0.75 mg, Once
     Route: 042
     Dates: start: 20120403, end: 20120403
  4. ALOXI [Concomitant]
     Dosage: 0.75 mg, Once
     Route: 042
     Dates: start: 20120424, end: 20120424
  5. DECADRON PHOSPHATE INJECTION [Concomitant]
     Dosage: 13.2 mg, Once
     Route: 042
     Dates: start: 20120403, end: 20120403
  6. DECADRON PHOSPHATE INJECTION [Concomitant]
     Dosage: 13.2 mg, Once
     Route: 042
     Dates: start: 20120424, end: 20120424
  7. EPIRUBICIN HYDROCHLORIDE [Concomitant]
     Dosage: 100 mg/m2, Once
     Route: 042
     Dates: start: 20120403, end: 20120403
  8. EPIRUBICIN HYDROCHLORIDE [Concomitant]
     Dosage: 100 mg/m2, Once
     Route: 042
     Dates: start: 20120424, end: 20120424
  9. ENDOXAN [Concomitant]
     Dosage: 500 mg/m2, Once
     Route: 042
     Dates: start: 20120403, end: 20120403
  10. ENDOXAN [Concomitant]
     Dosage: 500 mg/m2, Once
     Route: 042
     Dates: start: 20120424, end: 20120424
  11. FLUOROURACIL [Concomitant]
     Dosage: 500 mg/m2, Once
     Route: 042
     Dates: start: 20120403, end: 20120403
  12. FLUOROURACIL [Concomitant]
     Dosage: 500 mg/m2, Once
     Route: 042
     Dates: start: 20120424, end: 20120424
  13. SODIUM CHLORIDE [Concomitant]
     Dosage: 100 ml, qd
     Route: 042
  14. SODIUM CHLORIDE [Concomitant]
     Dosage: 100 ml, qd
     Route: 042
  15. SODIUM CHLORIDE [Concomitant]
     Dosage: 50 ml, qd
     Route: 042
  16. SODIUM CHLORIDE [Concomitant]
     Dosage: 50 ml, qd
     Route: 042
  17. SODIUM CHLORIDE [Concomitant]
     Dosage: 50 ml, qd
     Route: 042

REACTIONS (3)
  - Injection site pain [Recovered/Resolved with Sequelae]
  - Injection site vasculitis [Recovered/Resolved with Sequelae]
  - Injection site induration [Recovered/Resolved with Sequelae]
